FAERS Safety Report 4474799-2 (Version None)
Quarter: 2004Q4

REPORT INFORMATION
  Report Type: 
  Country: None (occurrence: None)
  Receive Date: 20041012
  Receipt Date: 20041004
  Transmission Date: 20050328
  Serious: No
  Sender: FDA-Public Use
  Company Number: 2004UW20767

PATIENT
  Age: 60 Year
  Sex: Female

DRUGS (3)
  1. NEXIUM [Suspect]
     Dosage: 40 MG DAILY PO
     Route: 048
  2. LIPITOR [Suspect]
     Dosage: 10 MG DAILY PO
     Route: 048
  3. LEVAQUIN [Suspect]
     Dosage: 500 MG DAILY PO
     Route: 048

REACTIONS (7)
  - CANDIDIASIS [None]
  - DRUG INTERACTION [None]
  - HYPERSENSITIVITY [None]
  - PRURITUS [None]
  - PURPURA [None]
  - RASH MACULO-PAPULAR [None]
  - THROMBOCYTOPENIC PURPURA [None]
